FAERS Safety Report 13086108 (Version 2)
Quarter: 2017Q1

REPORT INFORMATION
  Report Type: Spontaneous
  Country: IT (occurrence: IT)
  Receive Date: 20170104
  Receipt Date: 20170217
  Transmission Date: 20170428
  Serious: Yes (Other)
  Sender: FDA-Public Use
  Company Number: IT-PFIZER INC-2016605440

PATIENT
  Age: 25 Year
  Sex: Female

DRUGS (2)
  1. DIAZEPAM. [Suspect]
     Active Substance: DIAZEPAM
  2. PAROXETINE. [Suspect]
     Active Substance: PAROXETINE

REACTIONS (3)
  - Suicide attempt [Recovering/Resolving]
  - Intentional product misuse [Recovering/Resolving]
  - Vomiting [Recovering/Resolving]
